FAERS Safety Report 13037988 (Version 1)
Quarter: 2016Q4

REPORT INFORMATION
  Report Type: Spontaneous
  Country: US (occurrence: US)
  Receive Date: 20161218
  Receipt Date: 20161218
  Transmission Date: 20170207
  Serious: No
  Sender: FDA-Public Use
  Company Number: US-BRISTOL-MYERS SQUIBB COMPANY-BMS-2016-105954

PATIENT
  Sex: Female
  Weight: 58.96 kg

DRUGS (2)
  1. SOVALDI [Suspect]
     Active Substance: SOFOSBUVIR
     Indication: HEPATITIS C
     Dosage: UNK
     Route: 065
     Dates: start: 20160317
  2. DAKLINZA [Suspect]
     Active Substance: DACLATASVIR
     Indication: HEPATITIS C
     Dosage: 60 MG, QD
     Route: 065
     Dates: start: 20160317

REACTIONS (6)
  - Asthenia [Recovering/Resolving]
  - Adverse drug reaction [Recovered/Resolved]
  - Renal disorder [Unknown]
  - Alopecia [Recovering/Resolving]
  - Hypertension [Unknown]
  - Pain [Not Recovered/Not Resolved]
